FAERS Safety Report 8131923-8 (Version None)
Quarter: 2012Q1

REPORT INFORMATION
  Report Type: 
  Country: None (occurrence: None)
  Receive Date: 20120213
  Receipt Date: 20120207
  Transmission Date: 20120608
  Serious: Yes (Other)
  Sender: FDA-Public Use
  Company Number: US-BAYER-2012-013387

PATIENT
  Age: 16 Year
  Sex: Female

DRUGS (2)
  1. BEYAZ [Suspect]
  2. YAZ [Suspect]

REACTIONS (1)
  - EMBOLISM VENOUS [None]
